FAERS Safety Report 4656377-5 (Version None)
Quarter: 2005Q2

REPORT INFORMATION
  Report Type: 
  Country: None (occurrence: None)
  Receive Date: 20050509
  Receipt Date: 20040510
  Transmission Date: 20051028
  Serious: Yes (Hospitalization)
  Sender: FDA-Public Use
  Company Number: JP-MERCK-0405USA00642

PATIENT
  Age: 76 Year
  Sex: Male

DRUGS (10)
  1. GASMOTIN [Concomitant]
     Indication: GASTRIC ULCER
     Route: 048
     Dates: start: 20040401
  2. ZOCOR [Suspect]
     Indication: HYPERLIPIDAEMIA
     Route: 048
     Dates: start: 19970501, end: 20040413
  3. WARFARIN POTASSIUM [Suspect]
     Indication: THROMBOLYSIS
     Route: 048
     Dates: start: 19970501
  4. ISOSORBIDE DINITRATE [Concomitant]
     Indication: PROPHYLAXIS
     Route: 048
     Dates: start: 19970101
  5. FAMOTIDINE [Suspect]
     Route: 048
     Dates: start: 20020101
  6. ASPIRIN [Concomitant]
     Route: 048
     Dates: start: 19970201
  7. OMEPRAZOLE [Suspect]
     Indication: GASTRIC ULCER
     Route: 048
     Dates: start: 20020905
  8. VASOTEC [Concomitant]
     Indication: MYOCARDIAL INFARCTION
     Route: 048
     Dates: start: 19970201
  9. PERSANTIN [Concomitant]
     Indication: PROPHYLAXIS
     Route: 048
     Dates: start: 19970201
  10. ECABET [Concomitant]
     Indication: GASTRIC ULCER
     Route: 048
     Dates: start: 19970201

REACTIONS (3)
  - DRUG INTERACTION [None]
  - HYPOAESTHESIA [None]
  - RHABDOMYOLYSIS [None]
